FAERS Safety Report 8303015-6 (Version None)
Quarter: 2012Q2

REPORT INFORMATION
  Report Type: 
  Country: None (occurrence: None)
  Receive Date: 20120421
  Receipt Date: 20120411
  Transmission Date: 20120825
  Serious: Yes (Hospitalization, Other)
  Sender: FDA-Public Use
  Company Number: JP-VERTEX PHARMACEUTICALS INC.-AE-2012-005160

PATIENT
  Age: 63 Year
  Sex: Male

DRUGS (7)
  1. REBETOL [Concomitant]
     Route: 048
     Dates: start: 20120316, end: 20120322
  2. REBETOL [Concomitant]
     Indication: HEPATITIS C
     Route: 048
     Dates: start: 20120224, end: 20120315
  3. PEG-INTRON [Concomitant]
     Indication: PRODUCT USED FOR UNKNOWN INDICATION
     Route: 058
     Dates: start: 20120224, end: 20120322
  4. REBETOL [Concomitant]
     Route: 048
     Dates: start: 20120323, end: 20120329
  5. TELAVIC (TELAPREVIR) [Suspect]
     Indication: HEPATITIS C
     Route: 048
     Dates: start: 20120224, end: 20120322
  6. TELAVIC (TELAPREVIR) [Suspect]
     Route: 048
     Dates: start: 20120323, end: 20120329
  7. PEG-INTRON [Concomitant]
     Route: 058
     Dates: start: 20120323, end: 20120329

REACTIONS (3)
  - DECREASED APPETITE [None]
  - NAUSEA [None]
  - MALAISE [None]
